FAERS Safety Report 7356117-5 (Version None)
Quarter: 2011Q1

REPORT INFORMATION
  Report Type: 
  Country: None (occurrence: None)
  Receive Date: 20110316
  Receipt Date: 20110224
  Transmission Date: 20110831
  Serious: Yes (Hospitalization)
  Sender: FDA-Public Use
  Company Number: US-BAYER-201041463NA

PATIENT
  Sex: Female
  Weight: 113.38 kg

DRUGS (6)
  1. YAZ [Suspect]
     Indication: CONTRACEPTION
  2. YASMIN [Suspect]
     Indication: PREMENSTRUAL SYNDROME
  3. YAZ [Suspect]
     Indication: PREMENSTRUAL SYNDROME
  4. YASMIN [Suspect]
     Indication: ACNE
     Dosage: UNK
     Dates: start: 20020101, end: 20040101
  5. YAZ [Suspect]
     Indication: ACNE
     Dosage: UNK
     Dates: start: 20030131
  6. YASMIN [Suspect]
     Indication: CONTRACEPTION

REACTIONS (2)
  - GALLBLADDER DISORDER [None]
  - INJURY [None]
